FAERS Safety Report 12273505 (Version 1)
Quarter: 2016Q2

REPORT INFORMATION
  Report Type: Spontaneous
  Country: NL (occurrence: NL)
  Receive Date: 20160415
  Receipt Date: 20160415
  Transmission Date: 20160815
  Serious: Yes (Life-Threatening, Hospitalization, Disabling, Other)
  Sender: FDA-Public Use
  Company Number: NL-PFIZER INC-2016203942

PATIENT
  Age: 52 Year
  Sex: Male
  Weight: 92 kg

DRUGS (1)
  1. LIPITOR [Suspect]
     Active Substance: ATORVASTATIN CALCIUM
     Indication: HYPERCHOLESTEROLAEMIA
     Dosage: 40 MG, 1X/DAY
     Route: 048
     Dates: start: 1998, end: 2013

REACTIONS (30)
  - Polyneuropathy [Recovered/Resolved with Sequelae]
  - Tinnitus [Not Recovered/Not Resolved]
  - Myocardial infarction [Recovered/Resolved with Sequelae]
  - Barrett^s oesophagus [Unknown]
  - Fatigue [Unknown]
  - Muscle disorder [Unknown]
  - Muscle spasms [Unknown]
  - Carpal tunnel syndrome [Unknown]
  - Dizziness [Unknown]
  - Malaise [Unknown]
  - Hypoaesthesia [Unknown]
  - Rectal cancer [Recovered/Resolved with Sequelae]
  - Deafness unilateral [Unknown]
  - Sinusitis [Unknown]
  - Erectile dysfunction [Unknown]
  - Peyronie^s disease [Unknown]
  - Polyneuropathy [Unknown]
  - Ulcer [Unknown]
  - Myocardial infarction [Recovered/Resolved]
  - Pleurisy [Recovered/Resolved]
  - Respiratory tract infection [Unknown]
  - Sinusitis [Unknown]
  - Chills [Unknown]
  - Abdominal discomfort [Unknown]
  - Labyrinthitis [Unknown]
  - Osteitis [Unknown]
  - Respiratory tract infection [Unknown]
  - Immune system disorder [Recovered/Resolved with Sequelae]
  - Nausea [Unknown]
  - Joint swelling [Unknown]

NARRATIVE: CASE EVENT DATE: 200106
